FAERS Safety Report 15185842 (Version 1)
Quarter: 2018Q3

REPORT INFORMATION
  Report Type: Spontaneous
  Country: US (occurrence: US)
  Receive Date: 20180723
  Receipt Date: 20180723
  Transmission Date: 20181010
  Serious: Yes (Hospitalization)
  Sender: FDA-Public Use
  Company Number: US-VIFOR (INTERNATIONAL) INC.-VIT-2018-07041

PATIENT
  Age: 67 Year
  Sex: Male

DRUGS (19)
  1. SODIUM BICARBONATE. [Concomitant]
     Active Substance: SODIUM BICARBONATE
  2. LANTUS SOLOSTAR [Concomitant]
     Active Substance: INSULIN GLARGINE
  3. SIMVASTATIN. [Concomitant]
     Active Substance: SIMVASTATIN
  4. DORZOLAMIDE HYDROCHLORIDE. [Concomitant]
     Active Substance: DORZOLAMIDE HYDROCHLORIDE
  5. FLOMAX [Concomitant]
     Active Substance: TAMSULOSIN HYDROCHLORIDE
  6. TRAZODONE HYDROCHLORIDE. [Concomitant]
     Active Substance: TRAZODONE HYDROCHLORIDE
  7. PHOSLYRA [Concomitant]
     Active Substance: CALCIUM ACETATE
  8. COLECALCIFEROL [Concomitant]
     Active Substance: CHOLECALCIFEROL
  9. PRILOSEC [Concomitant]
     Active Substance: OMEPRAZOLE MAGNESIUM
  10. LASIX [Concomitant]
     Active Substance: FUROSEMIDE
  11. VITAMINS NOS [Concomitant]
     Active Substance: VITAMINS
  12. NOVOLOG [Concomitant]
     Active Substance: INSULIN ASPART
  13. HYDROCHLOROTHIAZIDE. [Concomitant]
     Active Substance: HYDROCHLOROTHIAZIDE
  14. ACETYLSALICYLIC ACID [Concomitant]
     Active Substance: ASPIRIN
  15. ZOFRAN [Concomitant]
     Active Substance: ONDANSETRON HYDROCHLORIDE
  16. PARACETAMOL~~HYDROCODONE BITARTRATE [Concomitant]
  17. CITALOPRAM HYDROBROMIDE. [Concomitant]
     Active Substance: CITALOPRAM HYDROBROMIDE
  18. ZYLOPRIM [Concomitant]
     Active Substance: ALLOPURINOL
  19. VELTASSA [Suspect]
     Active Substance: PATIROMER
     Indication: HYPERKALAEMIA
     Route: 048
     Dates: start: 20160622

REACTIONS (2)
  - Fluid retention [Unknown]
  - Renal impairment [Unknown]

NARRATIVE: CASE EVENT DATE: 20180704
